FAERS Safety Report 10703973 (Version 1)
Quarter: 2015Q1

REPORT INFORMATION
  Report Type: Spontaneous
  Country: SI (occurrence: SI)
  Receive Date: 20150112
  Receipt Date: 20150112
  Transmission Date: 20150721
  Serious: Yes (Other)
  Sender: FDA-Public Use
  Company Number: SI-SA-2015SA001763

PATIENT
  Age: 63 Year
  Sex: Male

DRUGS (4)
  1. LUTEINIZING HORMONE-RELEASING HORMONE [Concomitant]
     Active Substance: LUTEINIZING HORMONE
  2. MEDROL [Concomitant]
     Active Substance: METHYLPREDNISOLONE
     Dosage: ACCORDING TO THE SHEME
  3. TAXOTERE [Suspect]
     Active Substance: DOCETAXEL
     Indication: PROSTATE CANCER
     Route: 042
     Dates: start: 20141217, end: 20141217
  4. PANTOPRAZOLE [Concomitant]
     Active Substance: PANTOPRAZOLE SODIUM

REACTIONS (1)
  - Infusion related reaction [Recovered/Resolved]

NARRATIVE: CASE EVENT DATE: 20141217
